FAERS Safety Report 5944894-7 (Version None)
Quarter: 2008Q4

REPORT INFORMATION
  Report Type: 
  Country: None (occurrence: None)
  Receive Date: 20081107
  Receipt Date: 20081030
  Transmission Date: 20090506
  Serious: Yes (Death)
  Sender: FDA-Public Use
  Company Number: ES-EISAI MEDIAL RESEARCH-E7272-00006-SPO-ES

PATIENT
  Sex: Male

DRUGS (1)
  1. ONTAK [Suspect]
     Indication: MYCOSIS FUNGOIDES
     Dosage: UNKNOWN
     Route: 042
     Dates: start: 20081027

REACTIONS (3)
  - CARDIO-RESPIRATORY ARREST [None]
  - OEDEMA [None]
  - PRURITUS [None]
